FAERS Safety Report 12205678 (Version 2)
Quarter: 2020Q2

REPORT INFORMATION
  Report Type: Report from Study
  Country: PT (occurrence: PT)
  Receive Date: 20160323
  Receipt Date: 20200610
  Transmission Date: 20200713
  Serious: Yes (Other)
  Sender: FDA-Public Use
  Company Number: DE-ASTRAZENECA-2016SE28170

PATIENT
  Age: 19 Year
  Sex: Female

DRUGS (2)
  1. SULFAMETHOXAZOLE W/TRIMETHOPRIM [Concomitant]
     Active Substance: SULFAMETHOXAZOLE\TRIMETHOPRIM
  2. OMEPRAZOLE. [Suspect]
     Active Substance: OMEPRAZOLE
     Indication: GASTROENTERITIS
     Route: 048

REACTIONS (6)
  - Anaphylactic reaction [Unknown]
  - Throat tightness [Unknown]
  - Dyspnoea [Unknown]
  - Off label use [Unknown]
  - Skin test positive [Unknown]
  - Angioedema [Unknown]
